FAERS Safety Report 4920371-7 (Version None)
Quarter: 2006Q1

REPORT INFORMATION
  Report Type: 
  Country: None (occurrence: None)
  Receive Date: 20060223
  Receipt Date: 20051003
  Transmission Date: 20060701
  Serious: Yes (Hospitalization, Other)
  Sender: FDA-Public Use
  Company Number: US-MERCK-0510USA02497

PATIENT
  Age: 55 Year
  Sex: Male
  Weight: 98 kg

DRUGS (3)
  1. VIOXX [Suspect]
     Indication: CARDIAC DISORDER
     Route: 048
     Dates: start: 20021101, end: 20041001
  2. VIOXX [Suspect]
     Route: 048
     Dates: start: 20021101, end: 20041001
  3. VIOXX [Suspect]
     Route: 048
     Dates: start: 20040317, end: 20041001

REACTIONS (7)
  - ACUTE MYOCARDIAL INFARCTION [None]
  - ANGINA UNSTABLE [None]
  - CARDIAC DISORDER [None]
  - CATARACT [None]
  - CORONARY ARTERY DISEASE [None]
  - EPIDIDYMITIS [None]
  - PRESCRIBED OVERDOSE [None]
